FAERS Safety Report 12267495 (Version 2)
Quarter: 2016Q2

REPORT INFORMATION
  Report Type: Spontaneous
  Country: US (occurrence: US)
  Receive Date: 20160414
  Receipt Date: 20160603
  Transmission Date: 20160815
  Serious: Yes (Hospitalization, Other)
  Sender: FDA-Public Use
  Company Number: US-ASTRAZENECA-2016SE38475

PATIENT
  Age: 64 Year
  Sex: Female
  Weight: 92.1 kg

DRUGS (9)
  1. SYMBICORT [Suspect]
     Active Substance: BUDESONIDE\FORMOTEROL FUMARATE DIHYDRATE
     Indication: CHRONIC OBSTRUCTIVE PULMONARY DISEASE
     Dosage: 80/4.5 MCG TWO PUFFS TWICE DAILY
     Route: 055
  2. TRAZODONE [Concomitant]
     Active Substance: TRAZODONE HYDROCHLORIDE
  3. SYMBICORT [Suspect]
     Active Substance: BUDESONIDE\FORMOTEROL FUMARATE DIHYDRATE
     Indication: COUGH
     Dosage: 80/4.5 MCG TWO PUFFS TWICE DAILY
     Route: 055
  4. SYMBICORT [Suspect]
     Active Substance: BUDESONIDE\FORMOTEROL FUMARATE DIHYDRATE
     Indication: APHONIA
     Dosage: 80/4.5 MCG TWO PUFFS TWICE DAILY
     Route: 055
  5. LAMICTAL [Concomitant]
     Active Substance: LAMOTRIGINE
     Indication: SEIZURE
  6. METOPROLOL. [Suspect]
     Active Substance: METOPROLOL
     Route: 065
  7. SIMVISTATIN [Concomitant]
     Active Substance: SIMVASTATIN
  8. TYLENOL [Concomitant]
     Active Substance: ACETAMINOPHEN
  9. OMEPRAZOLE. [Suspect]
     Active Substance: OMEPRAZOLE
     Route: 048

REACTIONS (14)
  - Clostridium difficile colitis [Unknown]
  - Musculoskeletal pain [Not Recovered/Not Resolved]
  - Seizure [Unknown]
  - Off label use [Unknown]
  - Back pain [Not Recovered/Not Resolved]
  - Intestinal perforation [Unknown]
  - Renal impairment [Not Recovered/Not Resolved]
  - Renal cyst [Not Recovered/Not Resolved]
  - Device issue [Unknown]
  - Pulmonary oedema [Unknown]
  - Weight decreased [Unknown]
  - Dysphonia [Not Recovered/Not Resolved]
  - Cardiac failure congestive [Unknown]
  - Dehydration [Not Recovered/Not Resolved]

NARRATIVE: CASE EVENT DATE: 2001
